FAERS Safety Report 8813685 (Version 1)
Quarter: 2012Q4

REPORT INFORMATION
  Report Type: 
  Country: US (occurrence: US)
  Receive Date: 20120927
  Receipt Date: 20120927
  Transmission Date: 20130627
  Serious: Yes (Other)
  Sender: FDA-Public Use
  Company Number: US-JNJFOC-20120910810

PATIENT
  Sex: Female
  Weight: 66.7 kg

DRUGS (1)
  1. STELARA [Suspect]
     Indication: PSORIATIC ARTHROPATHY
     Dosage: at week 8 and 4 then

01-(unspecified month)-2012
     Route: 058
     Dates: start: 2012, end: 2012

REACTIONS (3)
  - Headache [Unknown]
  - Eye pain [Unknown]
  - Off label use [Recovered/Resolved]
